FAERS Safety Report 20410251 (Version 1)
Quarter: 2022Q1

REPORT INFORMATION
  Report Type: Report from Study
  Country: MX (occurrence: MX)
  Receive Date: 20220201
  Receipt Date: 20220201
  Transmission Date: 20220423
  Serious: Yes (Other)
  Sender: FDA-Public Use
  Company Number: MX-NOVARTISPH-NVSC2022MX020522

PATIENT
  Sex: Male
  Weight: 80 kg

DRUGS (2)
  1. EXELON [Suspect]
     Active Substance: RIVASTIGMINE TARTRATE
     Indication: Senile dementia
     Dosage: 9.5 MG, QD (PATCH 10 (CM2) OR CONTAINS BASE LOADED WITH 18 MG RIVASTIGMINE), ON SKIN
     Route: 003
     Dates: start: 2016
  2. EXELON [Suspect]
     Active Substance: RIVASTIGMINE TARTRATE
     Dosage: 2 DOSAGE FORM, QD
     Route: 065
     Dates: start: 2017

REACTIONS (2)
  - Amnesia [Unknown]
  - Inappropriate schedule of product administration [Unknown]

NARRATIVE: CASE EVENT DATE: 20170101
